FAERS Safety Report 4515475-7 (Version None)
Quarter: 2004Q4

REPORT INFORMATION
  Report Type: 
  Country: None (occurrence: None)
  Receive Date: 20041126
  Receipt Date: 20041115
  Transmission Date: 20050328
  Serious: Yes (Hospitalization)
  Sender: FDA-Public Use
  Company Number: 2004094108

PATIENT
  Age: 34 Year
  Sex: Female

DRUGS (3)
  1. DOXYCYCLINE [Suspect]
     Indication: VAGINAL INFECTION
     Dosage: 100 MG (100 MG 1 IN 1 D) ORAL
     Route: 048
     Dates: start: 20041019, end: 20041027
  2. FLUCLOXACILLIN (FLUCLOXACILLIN) [Suspect]
     Indication: POSTOPERATIVE INFECTION
     Dosage: 2000 MG (500 MG 4 IN 1 D) ORAL
     Route: 048
     Dates: start: 20041014, end: 20041020
  3. PREGMAL (FERROUS FUMARATE, FOLIC ACID) [Concomitant]

REACTIONS (8)
  - ALANINE AMINOTRANSFERASE INCREASED [None]
  - ASPARTATE AMINOTRANSFERASE INCREASED [None]
  - BLOOD ALKALINE PHOSPHATASE INCREASED [None]
  - DECREASED APPETITE [None]
  - GAMMA-GLUTAMYLTRANSFERASE INCREASED [None]
  - JAUNDICE [None]
  - PRURITUS [None]
  - PSORIASIS [None]
